FAERS Safety Report 9404709 (Version 1)
Quarter: 2013Q3

REPORT INFORMATION
  Report Type: Spontaneous
  Country: US (occurrence: None)
  Receive Date: 20130716
  Receipt Date: 20130716
  Transmission Date: 20140515
  Serious: No
  Sender: FDA-Public Use
  Company Number: None

PATIENT
  Age: 71 Year
  Sex: Male

DRUGS (6)
  1. XTANDI [Suspect]
     Indication: PROSTATE CANCER
     Route: 048
     Dates: start: 20130322, end: 20130612
  2. METOPROLOL [Concomitant]
  3. PLAVIX [Concomitant]
  4. BICALUTAMIDE [Concomitant]
  5. PREDNISONE [Concomitant]
  6. SIMVASTATIN [Concomitant]

REACTIONS (4)
  - Abdominal discomfort [None]
  - Dizziness [None]
  - Arthralgia [None]
  - Drug ineffective [None]
